FAERS Safety Report 7301014-4 (Version None)
Quarter: 2011Q1

REPORT INFORMATION
  Report Type: 
  Country: None (occurrence: None)
  Receive Date: 20110111
  Receipt Date: 20091228
  Transmission Date: 20110831
  Serious: Yes (Other)
  Sender: FDA-Public Use
  Company Number: 2009BH016100

PATIENT

DRUGS (1)
  1. VANCOMYCIN HCL [Suspect]
     Indication: PRODUCT USED FOR UNKNOWN INDICATION
     Dosage: 1 GM; IV
     Route: 042
     Dates: start: 20090101, end: 20090101

REACTIONS (1)
  - RED MAN SYNDROME [None]
